FAERS Safety Report 4690767-X (Version None)
Quarter: 2005Q2

REPORT INFORMATION
  Report Type: 
  Country: None (occurrence: None)
  Receive Date: 20050615
  Receipt Date: 20050608
  Transmission Date: 20051028
  Serious: Yes (Death, Other)
  Sender: FDA-Public Use
  Company Number: JP-MERCK-0506USA01499

PATIENT
  Age: 63 Year
  Sex: Female

DRUGS (1)
  1. PRIMAXIN [Suspect]
     Route: 042
     Dates: start: 20050506, end: 20050511

REACTIONS (5)
  - CONVULSION [None]
  - DRUG INEFFECTIVE [None]
  - HEPATIC FAILURE [None]
  - PNEUMONIA [None]
  - PULMONARY CONGESTION [None]
